FAERS Safety Report 11057404 (Version 2)
Quarter: 2015Q2

REPORT INFORMATION
  Report Type: Spontaneous
  Country: US (occurrence: US)
  Receive Date: 20150422
  Receipt Date: 20150617
  Transmission Date: 20150821
  Serious: Yes (Hospitalization, Other)
  Sender: FDA-Public Use
  Company Number: US-BAYER-2015-034242

PATIENT
  Age: 41 Year
  Sex: Female
  Weight: 100 kg

DRUGS (1)
  1. MIRENA [Suspect]
     Active Substance: LEVONORGESTREL
     Dosage: 20 MCG/24HR, CONT
     Route: 015
     Dates: start: 20100128, end: 20150227

REACTIONS (15)
  - Abdominal distension [Unknown]
  - Vaginal haemorrhage [None]
  - Menorrhagia [None]
  - Device difficult to use [Unknown]
  - Complication of device insertion [Unknown]
  - Off label use of device [Unknown]
  - Systemic leakage [Unknown]
  - Uterine leiomyoma [None]
  - Device deployment issue [Unknown]
  - Hypotension [Unknown]
  - Oxygen saturation decreased [Recovered/Resolved]
  - Device dislocation [None]
  - Device difficult to use [None]
  - Hypothermia [Unknown]
  - Genital haemorrhage [None]

NARRATIVE: CASE EVENT DATE: 20150213
